FAERS Safety Report 8317154-7 (Version None)
Quarter: 2012Q2

REPORT INFORMATION
  Report Type: 
  Country: None (occurrence: None)
  Receive Date: 20120427
  Receipt Date: 20120419
  Transmission Date: 20120825
  Serious: Yes (Hospitalization, Other)
  Sender: FDA-Public Use
  Company Number: US-PFIZER INC-2012073685

PATIENT
  Sex: Female

DRUGS (15)
  1. CARAFATE [Concomitant]
  2. POTASSIUM [Concomitant]
  3. LEXAPRO [Concomitant]
  4. MS CONTIN [Concomitant]
  5. NEXIUM [Suspect]
     Dosage: UNK
     Dates: end: 20120219
  6. MILK OF MAGNESIA TAB [Concomitant]
  7. CELEBREX [Suspect]
     Dosage: UNK
     Dates: end: 20120219
  8. XYZAL [Concomitant]
  9. MIRAPEX [Concomitant]
  10. TERIPARATIDE [Suspect]
     Indication: OSTEOPOROSIS
     Dosage: 20 UG, UNK
     Dates: start: 20110520
  11. ADVAIR DISKUS 100/50 [Concomitant]
  12. FAMCLCLOVLR [Concomitant]
  13. LYRICA [Suspect]
     Dosage: UNK
     Dates: end: 20120219
  14. TERIPARATIDE [Suspect]
     Dosage: 20 UG, UNK
     Dates: end: 20120201
  15. SINGULAIR [Suspect]
     Dosage: UNK
     Dates: end: 20120219

REACTIONS (19)
  - KERATITIS [None]
  - EYE DISORDER [None]
  - ACTIVITIES OF DAILY LIVING IMPAIRED [None]
  - MENTAL IMPAIRMENT [None]
  - DRUG DOSE OMISSION [None]
  - DIARRHOEA [None]
  - NAUSEA [None]
  - MALAISE [None]
  - ARTHRALGIA [None]
  - ANXIETY [None]
  - INSOMNIA [None]
  - ABDOMINAL PAIN UPPER [None]
  - PAIN [None]
  - VISUAL IMPAIRMENT [None]
  - FATIGUE [None]
  - DIZZINESS [None]
  - RETCHING [None]
  - VOMITING [None]
  - EYE DISCHARGE [None]
